FAERS Safety Report 9455385 (Version 3)
Quarter: 2013Q4

REPORT INFORMATION
  Report Type: Spontaneous
  Country: ZA (occurrence: ZA)
  Receive Date: 20130813
  Receipt Date: 20131106
  Transmission Date: 20140711
  Serious: Yes (Hospitalization, Other)
  Sender: FDA-Public Use
  Company Number: PHHY2013ZA085464

PATIENT
  Age: 77 Year
  Sex: Male

DRUGS (8)
  1. COTAREG [Suspect]
     Indication: HYPERTENSION
     Dosage: 80 MG, DAILY
     Dates: end: 201307
  2. TAREG [Suspect]
     Indication: HYPERTENSION
     Dosage: 80 MG, INTERMITTENTLY
  3. TAREG [Suspect]
     Dosage: 80 MG, INTERMITTANTLY
  4. PEXOLA [Concomitant]
     Indication: PARKINSONISM
     Dosage: UNK UKN, UNK
     Dates: end: 201209
  5. MADOPAR [Concomitant]
     Indication: PARKINSON^S DISEASE
     Dosage: 1 DF, (50 MG BENS/200 MG LEVO)
     Dates: start: 201211
  6. MADOPAR [Concomitant]
     Dosage: QID
     Dates: start: 201301
  7. SERUM LIPID REDUCING AGENTS [Concomitant]
     Indication: BLOOD CHOLESTEROL
     Dosage: UNK UKN, UNK
  8. CLOPIDOGREL WINTHROP [Concomitant]
     Indication: ARTERIOSCLEROSIS
     Dosage: UNK UKN, UNK
     Dates: start: 201209

REACTIONS (4)
  - Blood pressure inadequately controlled [Unknown]
  - Vascular occlusion [Unknown]
  - Ear pain [Unknown]
  - Sleep disorder [Unknown]
